FAERS Safety Report 17989031 (Version 5)
Quarter: 2021Q1

REPORT INFORMATION
  Report Type: Report from Study
  Country: US (occurrence: US)
  Receive Date: 20200707
  Receipt Date: 20210331
  Transmission Date: 20210419
  Serious: No
  Sender: FDA-Public Use
  Company Number: US-BIOVITRUM-2020US3551

PATIENT
  Sex: Male

DRUGS (1)
  1. KINERET [Suspect]
     Active Substance: ANAKINRA
     Indication: PRODUCT USED FOR UNKNOWN INDICATION
     Route: 058
     Dates: start: 20201124

REACTIONS (5)
  - Condition aggravated [Unknown]
  - Feeling abnormal [Unknown]
  - Product dose omission issue [Unknown]
  - Sinusitis [Unknown]
  - Loss of personal independence in daily activities [Not Recovered/Not Resolved]
